FAERS Safety Report 11645691 (Version 1)
Quarter: 2015Q4

REPORT INFORMATION
  Report Type: Spontaneous
  Country: KR (occurrence: KR)
  Receive Date: 20151020
  Receipt Date: 20151020
  Transmission Date: 20160304
  Serious: Yes (Other)
  Sender: FDA-Public Use
  Company Number: KR-BAXTER-2015BAX055660

PATIENT
  Age: 53 Year
  Sex: Female

DRUGS (2)
  1. BAXTER SEVOFLURANE [Suspect]
     Active Substance: SEVOFLURANE
     Indication: MAINTENANCE OF ANAESTHESIA
     Route: 055
  2. REMIFENTANIL [Suspect]
     Active Substance: REMIFENTANIL
     Indication: GENERAL ANAESTHESIA
     Route: 065

REACTIONS (3)
  - Delayed recovery from anaesthesia [Unknown]
  - Myoclonic epilepsy [Recovered/Resolved]
  - Monoplegia [Unknown]
